FAERS Safety Report 10031000 (Version 3)
Quarter: 2014Q2

REPORT INFORMATION
  Report Type: Spontaneous
  Country: US (occurrence: US)
  Receive Date: 20140324
  Receipt Date: 20140613
  Transmission Date: 20141212
  Serious: No
  Sender: FDA-Public Use
  Company Number: US-009507513-1403USA009975

PATIENT
  Sex: Female

DRUGS (1)
  1. FOLLISTIM AQ CARTRIDGE [Suspect]
     Dosage: FOLLISTIM AQ CART 300IU 1 STANDARD PACKAGE CARTRIDGE OF 1

REACTIONS (4)
  - Drug dose omission [Unknown]
  - Product label issue [Unknown]
  - Product packaging quantity issue [Unknown]
  - No adverse event [Unknown]
